FAERS Safety Report 13363510 (Version 2)
Quarter: 2017Q2

REPORT INFORMATION
  Report Type: Spontaneous
  Country: BR (occurrence: BR)
  Receive Date: 20170323
  Receipt Date: 20170411
  Transmission Date: 20170830
  Serious: Yes (Other)
  Sender: FDA-Public Use
  Company Number: ALCN2017BR002139

PATIENT
  Age: 56 Year
  Sex: Male
  Weight: 104 kg

DRUGS (5)
  1. TYLENOL [Concomitant]
     Active Substance: ACETAMINOPHEN
     Indication: SLEEP DISORDER
     Dosage: 750 MG, QD
     Route: 065
     Dates: start: 20170315, end: 20170316
  2. NEVANAC [Suspect]
     Active Substance: NEPAFENAC
     Indication: POSTOPERATIVE CARE
     Dosage: 1 GTT, TID DURING 15 DAYS
     Route: 047
     Dates: start: 20170315, end: 20170321
  3. PANTOPRAZOLE [Concomitant]
     Active Substance: PANTOPRAZOLE
     Indication: GASTRITIS
     Dosage: 1 DF, QD (MORNING)
     Route: 065
     Dates: start: 2008
  4. BESIVANCE [Concomitant]
     Active Substance: BESIFLOXACIN
     Indication: PRODUCT USED FOR UNKNOWN INDICATION
     Dosage: 1 GTT, TID, DURING 7 DAYS
     Route: 065
     Dates: start: 20170315, end: 20170321
  5. PRED FORT [Concomitant]
     Active Substance: PREDNISOLONE ACETATE
     Indication: PRODUCT USED FOR UNKNOWN INDICATION
     Dosage: 1 GTT, Q2H, DURING 1ST WEEK
     Route: 047
     Dates: start: 20170315, end: 20170404

REACTIONS (7)
  - Instillation site foreign body sensation [Not Recovered/Not Resolved]
  - Vision blurred [Not Recovered/Not Resolved]
  - Eyelid oedema [Not Recovered/Not Resolved]
  - Injury corneal [Not Recovered/Not Resolved]
  - Keratitis [Unknown]
  - Corneal thickening [Not Recovered/Not Resolved]
  - Diplopia [Not Recovered/Not Resolved]

NARRATIVE: CASE EVENT DATE: 20170315
